FAERS Safety Report 6449458-7 (Version None)
Quarter: 2009Q4

REPORT INFORMATION
  Report Type: 
  Country: None (occurrence: None)
  Receive Date: 20091120
  Receipt Date: 20091109
  Transmission Date: 20100525
  Serious: Yes (Other)
  Sender: FDA-Public Use
  Company Number: PHHY2009JP47129

PATIENT

DRUGS (8)
  1. SANDOSTATIN [Suspect]
     Indication: HYPOGLYCAEMIA
     Route: 058
  2. GLUCOSE [Concomitant]
     Indication: HYPOGLYCAEMIA
     Dosage: 14 MG/KG/MIN
  3. HYDROCORTISONE [Concomitant]
     Indication: HYPOGLYCAEMIA
  4. GLUCAGON [Concomitant]
     Indication: HYPOGLYCAEMIA
     Route: 042
  5. GLUCAGON [Concomitant]
     Dosage: UNK
     Route: 058
  6. DIAZOXIDE [Concomitant]
     Indication: HYPOGLYCAEMIA
     Route: 048
  7. DIAZOXIDE [Concomitant]
     Dosage: 20 MG/KG/DAY
     Route: 048
  8. MILK [Concomitant]
     Dosage: EVERY 2 HOURS

REACTIONS (13)
  - CHOLELITHIASIS [None]
  - DIABETES MELLITUS [None]
  - DRUG INEFFECTIVE [None]
  - GLYCOSYLATED HAEMOGLOBIN INCREASED [None]
  - HYPERGLYCAEMIA [None]
  - HYPOGLYCAEMIA [None]
  - NAUSEA [None]
  - PANCREATECTOMY [None]
  - PANCREATIC DISORDER [None]
  - PANCREATIC INSUFFICIENCY [None]
  - PANCREATIC ISLETS HYPERPLASIA [None]
  - STEATORRHOEA [None]
  - VOMITING [None]
